FAERS Safety Report 13081465 (Version 1)
Quarter: 2017Q1

REPORT INFORMATION
  Report Type: Spontaneous
  Country: US (occurrence: US)
  Receive Date: 20170103
  Receipt Date: 20170103
  Transmission Date: 20170428
  Serious: No
  Sender: FDA-Public Use
  Company Number: US-PFIZER INC-2016598387

PATIENT

DRUGS (1)
  1. ADVIL [Suspect]
     Active Substance: IBUPROFEN
     Dosage: UNK

REACTIONS (3)
  - Pain [Unknown]
  - Condition aggravated [Unknown]
  - Fatigue [Unknown]
